FAERS Safety Report 5601578-2 (Version None)
Quarter: 2008Q1

REPORT INFORMATION
  Report Type: 
  Country: None (occurrence: None)
  Receive Date: 20080124
  Receipt Date: 20080110
  Transmission Date: 20080703
  Serious: Yes (Hospitalization)
  Sender: FDA-Public Use
  Company Number: BE-GENENTECH-254551

PATIENT
  Sex: Female
  Weight: 84 kg

DRUGS (9)
  1. HERCEPTIN [Suspect]
     Indication: BREAST CANCER
     Dosage: 1 UNK, Q3W
     Dates: start: 20070705
  2. FLUOROURACIL [Concomitant]
     Indication: BREAST CANCER
     Dates: start: 20061124, end: 20070316
  3. ADRIAMYCIN PFS [Concomitant]
     Indication: BREAST CANCER
     Dates: start: 20061124, end: 20070316
  4. CYCLOPHOSPHAMIDE [Concomitant]
     Indication: BREAST CANCER
     Dates: start: 20061124, end: 20070316
  5. EMCONCOR [Concomitant]
     Indication: DRUG USE FOR UNKNOWN INDICATION
  6. SPIRONOLACTONE [Concomitant]
     Indication: DRUG USE FOR UNKNOWN INDICATION
  7. ASAFLOW [Concomitant]
     Indication: DRUG USE FOR UNKNOWN INDICATION
  8. ARIMIDEX [Concomitant]
     Indication: BREAST CANCER
     Dates: start: 20070615
  9. LASIX [Concomitant]
     Indication: DRUG USE FOR UNKNOWN INDICATION

REACTIONS (4)
  - ANGINA PECTORIS [None]
  - CORONARY ARTERY DISEASE [None]
  - DYSPNOEA [None]
  - EJECTION FRACTION DECREASED [None]
